FAERS Safety Report 9940417 (Version 1)
Quarter: 2014Q1

REPORT INFORMATION
  Report Type: Spontaneous
  Country: US (occurrence: US)
  Receive Date: 20140303
  Receipt Date: 20140303
  Transmission Date: 20141002
  Serious: No
  Sender: FDA-Public Use
  Company Number: US-BAXTER-2014BAX009402

PATIENT
  Sex: Female

DRUGS (2)
  1. DIANEAL LOW CALCIUM (ULTRABAG) [Suspect]
     Indication: RENAL FAILURE
     Route: 033
     Dates: start: 20140115
  2. DIANEAL LOW CALCIUM (ULTRABAG) [Suspect]
     Indication: RENAL FAILURE
     Route: 033
     Dates: start: 20140115

REACTIONS (3)
  - Joint swelling [Recovering/Resolving]
  - Local swelling [Recovering/Resolving]
  - Fluid overload [Recovering/Resolving]
